FAERS Safety Report 19232363 (Version 3)
Quarter: 2021Q2

REPORT INFORMATION
  Report Type: Spontaneous
  Country: GB (occurrence: GB)
  Receive Date: 20210507
  Receipt Date: 20210626
  Transmission Date: 20210717
  Serious: Yes (Other)
  Sender: FDA-Public Use
  Company Number: NVSC2021GB098759

PATIENT
  Age: 22 Year
  Sex: Male
  Weight: 135 kg

DRUGS (6)
  1. CALCIUM FOLINATE [Suspect]
     Active Substance: LEUCOVORIN CALCIUM
     Indication: NEUROENDOCRINE CARCINOMA
     Dosage: UNK
     Route: 065
     Dates: start: 202007, end: 202010
  2. CARBOPLATIN. [Suspect]
     Active Substance: CARBOPLATIN
     Indication: NEUROENDOCRINE CARCINOMA
     Dosage: UNK
     Route: 065
     Dates: start: 202007, end: 202010
  3. OXALIPLATIN. [Suspect]
     Active Substance: OXALIPLATIN
     Indication: NEUROENDOCRINE CARCINOMA
     Dosage: UNK
     Route: 065
     Dates: start: 202007, end: 202010
  4. ETOPOSIDE. [Suspect]
     Active Substance: ETOPOSIDE
     Indication: NEUROENDOCRINE CARCINOMA
     Dosage: UNK
     Route: 065
     Dates: start: 202007, end: 202010
  5. FLUOROURACIL. [Suspect]
     Active Substance: FLUOROURACIL
     Indication: NEUROENDOCRINE CARCINOMA
     Dosage: UNK
     Route: 065
     Dates: start: 202007, end: 202010
  6. IRINOTECAN [Suspect]
     Active Substance: IRINOTECAN
     Indication: NEUROENDOCRINE CARCINOMA
     Dosage: UNK
     Route: 065
     Dates: start: 202007, end: 202010

REACTIONS (2)
  - Product use in unapproved indication [Unknown]
  - Malignant neoplasm progression [Unknown]
